FAERS Safety Report 21167063 (Version 1)
Quarter: 2022Q3

REPORT INFORMATION
  Report Type: Report from Study
  Country: FR (occurrence: FR)
  Receive Date: 20220803
  Receipt Date: 20220803
  Transmission Date: 20221027
  Serious: Yes (Death, Other)
  Sender: FDA-Public Use
  Company Number: FR-PFIZER INC-202201027308

PATIENT

DRUGS (1)
  1. RITUXIMAB [Suspect]
     Active Substance: RITUXIMAB
     Indication: Mucous membrane pemphigoid
     Dosage: TWO INFUSIONS OF 1 G, 2 WEEKS APART (FIRST CYCLE AT BASELINE)

REACTIONS (2)
  - Pneumonia bacterial [Fatal]
  - Tracheal stenosis [Fatal]
